FAERS Safety Report 16107370 (Version 3)
Quarter: 2019Q2

REPORT INFORMATION
  Report Type: Spontaneous
  Country: NO (occurrence: NO)
  Receive Date: 20190322
  Receipt Date: 20190408
  Transmission Date: 20190711
  Serious: Yes (Life-Threatening, Hospitalization, Other)
  Sender: FDA-Public Use
  Company Number: NO-ASTRAZENECA-2019SE42670

PATIENT
  Sex: Female

DRUGS (4)
  1. GABAPENTIN. [Concomitant]
     Active Substance: GABAPENTIN
     Indication: NEURALGIA
     Dosage: 100 MG X3
     Route: 048
     Dates: start: 20190308, end: 20190311
  2. CETIRIZIN [Concomitant]
     Active Substance: CETIRIZINE HYDROCHLORIDE
     Indication: PRURITUS
     Dosage: 10.0MG AS REQUIRED
     Route: 048
     Dates: start: 20190225
  3. DURVALUMAB. [Suspect]
     Active Substance: DURVALUMAB
     Indication: NON-SMALL CELL LUNG CANCER STAGE III
     Dosage: 560.0MG UNKNOWN
     Route: 042
     Dates: start: 20180605, end: 20190325
  4. VI-SIBLIN [Concomitant]
     Active Substance: HERBALS\PLANTAGO OVATA LEAF
     Indication: ABNORMAL FAECES
     Dosage: HALF BAG WHEN NEEDED
     Route: 048

REACTIONS (14)
  - Bone marrow failure [Unknown]
  - Leukopenia [Unknown]
  - Asthenia [Unknown]
  - Headache [Unknown]
  - Influenza [Unknown]
  - Escherichia urinary tract infection [Unknown]
  - Oropharyngeal pain [Unknown]
  - Blood thyroid stimulating hormone decreased [Unknown]
  - Immune-mediated hepatitis [Not Recovered/Not Resolved]
  - Pathogen resistance [Unknown]
  - Neutropenia [Recovered/Resolved]
  - Trigeminal neuralgia [Unknown]
  - Chronic obstructive pulmonary disease [Unknown]
  - Myalgia [Unknown]

NARRATIVE: CASE EVENT DATE: 20190311
